FAERS Safety Report 10626566 (Version 1)
Quarter: 2014Q4

REPORT INFORMATION
  Report Type: Spontaneous
  Country: US (occurrence: None)
  Receive Date: 20141121
  Receipt Date: 20141121
  Transmission Date: 20150529
  Serious: No
  Sender: FDA-Public Use
  Company Number: 163-10004-14092546

PATIENT
  Age: 57 Year
  Sex: Female
  Weight: 113.4 kg

DRUGS (9)
  1. PREDNISONE (PREDNISONE) [Concomitant]
     Active Substance: PREDNISONE
  2. CELEBREX (CELEBREX) [Concomitant]
  3. EFFEXOR HCL (VENLAFAXINE HYDROCHLORIDE) [Concomitant]
  4. OTEZLA [Suspect]
     Active Substance: APREMILAST
     Indication: PSORIATIC ARTHROPATHY
     Route: 048
     Dates: start: 20140906
  5. SYNTHROID [Concomitant]
     Active Substance: LEVOTHYROXINE SODIUM
  6. METFORMIN [Concomitant]
     Active Substance: METFORMIN HYDROCHLORIDE
  7. TRAMADOL (TRAMADOL) [Concomitant]
     Active Substance: TRAMADOL
  8. ENBREL [Concomitant]
     Active Substance: ETANERCEPT
  9. NEXIUM [Concomitant]
     Active Substance: ESOMEPRAZOLE MAGNESIUM

REACTIONS (8)
  - Fatigue [None]
  - Dizziness [None]
  - Headache [None]
  - Diarrhoea [None]
  - Nausea [None]
  - Abdominal pain upper [None]
  - Depression [None]
  - Dyspepsia [None]

NARRATIVE: CASE EVENT DATE: 20140907
